FAERS Safety Report 6910798-6 (Version None)
Quarter: 2010Q3

REPORT INFORMATION
  Report Type: 
  Country: None (occurrence: None)
  Receive Date: 20100716
  Receipt Date: 20091130
  Transmission Date: 20110219
  Serious: Yes (Other)
  Sender: FDA-Public Use
  Company Number: 2009304799

PATIENT

DRUGS (1)
  1. CELEBREX [Suspect]

REACTIONS (2)
  - CYSTITIS [None]
  - URINARY INCONTINENCE [None]
